FAERS Safety Report 5374089-X (Version None)
Quarter: 2007Q2

REPORT INFORMATION
  Report Type: 
  Country: None (occurrence: None)
  Receive Date: 20070627
  Receipt Date: 20070611
  Transmission Date: 20071010
  Serious: Yes (Other)
  Sender: FDA-Public Use
  Company Number: A-NJ2007-15882

PATIENT
  Age: 69 Year
  Sex: Female
  Weight: 132.9 kg

DRUGS (19)
  1. VENTAVIS (LLOPROST INHALATION SOLUTION 5UG US )VENTAVIS (ILOPROST) INH [Suspect]
     Indication: PULMONARY HYPERTENSION
     Dosage: SEE IMAGE
     Route: 055
     Dates: start: 20070101, end: 20070101
  2. VENTAVIS (LLOPROST INHALATION SOLUTION 5UG US )VENTAVIS (ILOPROST) INH [Suspect]
     Indication: PULMONARY HYPERTENSION
     Dosage: SEE IMAGE
     Route: 055
     Dates: start: 20070101, end: 20070521
  3. TRACLEER [Concomitant]
  4. SILDENAFIL TABLET [Concomitant]
  5. MOBIC [Concomitant]
  6. LASIX [Concomitant]
  7. K-DUR 10 [Concomitant]
  8. DITROPAN [Concomitant]
  9. LIPITOR [Concomitant]
  10. TRAVATAN [Concomitant]
  11. NASACORT AQ (TRIAMCINO9LONE ACETONIDE) [Concomitant]
  12. MULTIVITAMIN [Concomitant]
  13. ASPIRIN [Concomitant]
  14. FAMVIR (PENCICLOVIR) [Concomitant]
  15. TYLENOL 8 HOUR (PARACETAMOL) [Concomitant]
  16. GLYCOLAX (MACROGOL) [Concomitant]
  17. ZADITOR [Concomitant]
  18. TRAMADOL HCL [Concomitant]
  19. OXYGEN (OXYGEN) [Concomitant]

REACTIONS (6)
  - DRUG INEFFECTIVE FOR UNAPPROVED INDICATION [None]
  - DYSPNOEA [None]
  - FATIGUE [None]
  - MEDICAL DEVICE COMPLICATION [None]
  - NO THERAPEUTIC RESPONSE [None]
  - SINUSITIS [None]
